FAERS Safety Report 21371555 (Version 2)
Quarter: 2022Q3

REPORT INFORMATION
  Report Type: Report from Study
  Country: CN (occurrence: CN)
  Receive Date: 20220923
  Receipt Date: 20220929
  Transmission Date: 20221026
  Serious: Yes (Hospitalization)
  Sender: FDA-Public Use
  Company Number: CN-GLAXOSMITHKLINE-CN2022GSK136529

PATIENT

DRUGS (9)
  1. BELANTAMAB MAFODOTIN [Suspect]
     Active Substance: BELANTAMAB MAFODOTIN
     Indication: Plasma cell myeloma
     Dosage: 2.5 MG/KG (202.50 MG/KG), CYC
     Route: 042
     Dates: start: 20220520, end: 20220520
  2. BELANTAMAB MAFODOTIN [Suspect]
     Active Substance: BELANTAMAB MAFODOTIN
     Dosage: 2.5 MG/KG (202.50 MG/KG), CYC
     Route: 042
     Dates: start: 20220609, end: 20220609
  3. BELANTAMAB MAFODOTIN [Suspect]
     Active Substance: BELANTAMAB MAFODOTIN
     Dosage: 2.5 MG/KG (202.50 MG/KG), CYC
     Route: 042
     Dates: start: 20220812, end: 20220812
  4. ACETAMINOPHEN SUSTAINED-RELEASE TABLETS [Concomitant]
     Indication: Prophylaxis
     Dosage: 680 MG, QD
     Route: 048
     Dates: start: 20220520, end: 20220520
  5. ACETAMINOPHEN SUSTAINED-RELEASE TABLETS [Concomitant]
     Dosage: 680 MG, QD
     Route: 048
     Dates: start: 20220609, end: 20220609
  6. ACETAMINOPHEN SUSTAINED-RELEASE TABLETS [Concomitant]
     Dosage: 680 MG, QD
     Route: 048
     Dates: start: 20220630, end: 20220630
  7. DIPHENHYDRAMINE HYDROCHLORIDE [Concomitant]
     Active Substance: DIPHENHYDRAMINE HYDROCHLORIDE
     Indication: Prophylaxis
     Dosage: 20 MG/ML, QD
     Route: 058
     Dates: start: 20220520, end: 20220520
  8. DIPHENHYDRAMINE HYDROCHLORIDE [Concomitant]
     Active Substance: DIPHENHYDRAMINE HYDROCHLORIDE
     Dosage: 20 MG/ML, QD
     Route: 058
     Dates: start: 20220609, end: 20220609
  9. DIPHENHYDRAMINE HYDROCHLORIDE [Concomitant]
     Active Substance: DIPHENHYDRAMINE HYDROCHLORIDE
     Dosage: 20 MG/ML, QD
     Route: 058
     Dates: start: 20220630, end: 20220630

REACTIONS (1)
  - Inflammation [Unknown]

NARRATIVE: CASE EVENT DATE: 20220919
